FAERS Safety Report 9368946 (Version 1)
Quarter: 2013Q2

REPORT INFORMATION
  Report Type: Spontaneous
  Country: NL (occurrence: None)
  Receive Date: 20130621
  Receipt Date: 20130621
  Transmission Date: 20140414
  Serious: Yes (Other)
  Sender: FDA-Public Use
  Company Number: 2013-2475

PATIENT
  Age: 49 Year
  Sex: Male

DRUGS (2)
  1. SOMATULINE AUTOGEL [Suspect]
     Indication: COLON CANCER
     Dosage: 90MG (90MG, 1 IN 4 WK), SUBCUTANEOUS
     Route: 058
     Dates: end: 20130524
  2. SOMATULINE AUTOGEL [Suspect]
     Indication: OFF LABEL USE
     Dosage: 90MG (90MG, 1 IN 4 WK), SUBCUTANEOUS
     Route: 058
     Dates: end: 20130524

REACTIONS (1)
  - Terminal state [None]
